FAERS Safety Report 10047620 (Version 1)
Quarter: 2014Q1

REPORT INFORMATION
  Report Type: Spontaneous
  Country: FR (occurrence: FR)
  Receive Date: 20140331
  Receipt Date: 20140331
  Transmission Date: 20141002
  Serious: Yes (Other)
  Sender: FDA-Public Use
  Company Number: FR-PFIZER INC-2014085415

PATIENT
  Sex: Male

DRUGS (1)
  1. SALAZOPYRINE [Suspect]
     Dosage: UNK

REACTIONS (1)
  - Neoplasm [Unknown]
